FAERS Safety Report 13947175 (Version 3)
Quarter: 2018Q3

REPORT INFORMATION
  Report Type: Spontaneous
  Country: US (occurrence: US)
  Receive Date: 20170907
  Receipt Date: 20180719
  Transmission Date: 20181010
  Serious: Yes (Hospitalization)
  Sender: FDA-Public Use
  Company Number: US-DSJP-DSU-2017-135704

PATIENT

DRUGS (2)
  1. BENICAR HCT [Suspect]
     Active Substance: HYDROCHLOROTHIAZIDE\OLMESARTAN MEDOXOMIL
     Indication: HYPERTENSION
     Dosage: 40?12.5 MG, QD
     Route: 048
     Dates: start: 20090911, end: 20171012
  2. BENICAR HCT [Suspect]
     Active Substance: HYDROCHLOROTHIAZIDE\OLMESARTAN MEDOXOMIL
     Dosage: 40?25 MG , QD
     Route: 048
     Dates: start: 20090911, end: 20171012

REACTIONS (7)
  - Dehydration [Recovered/Resolved]
  - Gastrooesophageal reflux disease [Unknown]
  - Drug administration error [Unknown]
  - Gastroenteritis [Recovered/Resolved]
  - Umbilical hernia [Unknown]
  - Hyponatraemia [Unknown]
  - Hypokalaemia [Unknown]

NARRATIVE: CASE EVENT DATE: 20090911
